FAERS Safety Report 19004423 (Version 6)
Quarter: 2021Q4

REPORT INFORMATION
  Report Type: Report from Study
  Country: None (occurrence: CO)
  Receive Date: 20210313
  Receipt Date: 20211028
  Transmission Date: 20220303
  Serious: Yes (Other)
  Sender: FDA-Public Use
  Company Number: CO-ABBVIE-21K-036-3814524-00

PATIENT
  Age: 54 Year
  Sex: Female
  Weight: 56 kg

DRUGS (2)
  1. HUMIRA [Suspect]
     Active Substance: ADALIMUMAB
     Indication: Ankylosing spondylitis
     Route: 058
     Dates: start: 20160119
  2. HUMIRA [Suspect]
     Active Substance: ADALIMUMAB
     Indication: Ankylosing spondylitis
     Route: 058
     Dates: end: 20210111

REACTIONS (5)
  - Breast mass [Recovering/Resolving]
  - Erythema [Not Recovered/Not Resolved]
  - Breast pain [Recovering/Resolving]
  - Ankylosing spondylitis [Not Recovered/Not Resolved]
  - Breast disorder [Recovering/Resolving]

NARRATIVE: CASE EVENT DATE: 20210201
